FAERS Safety Report 9605310 (Version 4)
Quarter: 2014Q1

REPORT INFORMATION
  Report Type: Report from Study
  Country: BE (occurrence: BE)
  Receive Date: 20131008
  Receipt Date: 20140306
  Transmission Date: 20141002
  Serious: Yes (Life-Threatening, Hospitalization)
  Sender: FDA-Public Use
  Company Number: BE-SA-CLOF-1002693

PATIENT
  Age: 67 Year
  Sex: Female
  Weight: 52 kg

DRUGS (8)
  1. CLOFARABINE [Suspect]
     Indication: ACUTE LYMPHOCYTIC LEUKAEMIA
     Dosage: 46.97 MG, INDUCTION CYCLE 1
     Route: 042
     Dates: start: 20130601, end: 20130605
  2. CLOFARABINE [Suspect]
     Indication: ACUTE LYMPHOCYTIC LEUKAEMIA
     Dosage: 46.97 MG, INDUCTION CYCLE 1
     Route: 042
     Dates: start: 20130601, end: 20130605
  3. DOXORUBICIN [Suspect]
     Indication: ACUTE LYMPHOCYTIC LEUKAEMIA
     Dosage: 63.42 MG, INDUCTION CYCLE 1
     Route: 042
     Dates: start: 20130615
  4. PREDNISOLONE [Suspect]
     Indication: ACUTE LYMPHOCYTIC LEUKAEMIA
     Dosage: 31.71 MG, INDUCTION CYCLE 1
     Route: 048
     Dates: start: 20130608
  5. VINCRISTINE SULFATE [Suspect]
     Indication: ACUTE LYMPHOCYTIC LEUKAEMIA
     Dosage: 1.00 MG, INDUCTION CYCLE 1
     Route: 042
     Dates: start: 20130608
  6. METHOTREXATE [Suspect]
     Indication: ACUTE LYMPHOCYTIC LEUKAEMIA
     Dosage: 15 MG, INDUCTION CYCLE 1
     Route: 037
     Dates: start: 20130611
  7. CATAPRESSAN [Concomitant]
     Indication: HYPERTENSION
     Dosage: 150 MCG, UNK
     Route: 059
  8. HYDROCORTISONE [Concomitant]
     Dates: start: 20130618

REACTIONS (3)
  - Posterior reversible encephalopathy syndrome [Recovered/Resolved with Sequelae]
  - Colitis ischaemic [Not Recovered/Not Resolved]
  - Septic shock [Recovered/Resolved]
